FAERS Safety Report 17261148 (Version 1)
Quarter: 2020Q1

REPORT INFORMATION
  Report Type: Spontaneous
  Country: DK (occurrence: DK)
  Receive Date: 20200113
  Receipt Date: 20200113
  Transmission Date: 20200409
  Serious: Yes (Hospitalization)
  Sender: FDA-Public Use
  Company Number: DK-SAMSUNG BIOEPIS-SB-2019-40713

PATIENT
  Age: 41 Year
  Sex: Female

DRUGS (1)
  1. BENEPALI [Suspect]
     Active Substance: ETANERCEPT
     Indication: PSORIATIC ARTHROPATHY
     Route: 065
     Dates: start: 20170801

REACTIONS (8)
  - Dyspnoea [Unknown]
  - Lung disorder [Not Recovered/Not Resolved]
  - Cough [Recovered/Resolved]
  - Pulmonary pain [Unknown]
  - Pyrexia [Recovered/Resolved]
  - Wheezing [Recovered/Resolved]
  - Dyspnoea exertional [Unknown]
  - Asthma [Not Recovered/Not Resolved]

NARRATIVE: CASE EVENT DATE: 20170811
